FAERS Safety Report 16132747 (Version 1)
Quarter: 2019Q1

REPORT INFORMATION
  Report Type: Report from Study
  Country: IT (occurrence: IT)
  Receive Date: 20190329
  Receipt Date: 20190329
  Transmission Date: 20190418
  Serious: Yes (Hospitalization)
  Sender: FDA-Public Use
  Company Number: IT-TEVA-2019-IT-1031909

PATIENT
  Age: 67 Year
  Sex: Female

DRUGS (3)
  1. ACECLOFENAC [Suspect]
     Active Substance: ACECLOFENAC
     Route: 048
     Dates: start: 20181101, end: 20181107
  2. AMOXICILLINA/ACIDO CLAVULANICO [Suspect]
     Active Substance: AMOXICILLIN\CLAVULANIC ACID
     Route: 048
     Dates: start: 20181101, end: 20181107
  3. IRBESARTAN/IDROCLOROTIAZIDE [Concomitant]
     Active Substance: HYDROCHLOROTHIAZIDE\IRBESARTAN
     Indication: HYPERTENSION
     Route: 048
     Dates: start: 20181027, end: 20181201

REACTIONS (3)
  - Jaundice cholestatic [Recovering/Resolving]
  - Pruritus [Recovering/Resolving]
  - Drug-induced liver injury [Recovering/Resolving]

NARRATIVE: CASE EVENT DATE: 20181110
